FAERS Safety Report 9319015 (Version 1)
Quarter: 2013Q2

REPORT INFORMATION
  Report Type: Spontaneous
  Country: US (occurrence: US)
  Receive Date: 20130530
  Receipt Date: 20130530
  Transmission Date: 20140414
  Serious: No
  Sender: FDA-Public Use
  Company Number: US-NOVEN-13US005980

PATIENT
  Age: 18 Year
  Sex: Female

DRUGS (10)
  1. DAYTRANA [Suspect]
     Indication: ATTENTION DEFICIT/HYPERACTIVITY DISORDER
     Dosage: 20 MG, UNK
     Route: 062
     Dates: start: 201206
  2. MINOCYCLINE [Concomitant]
     Indication: SKIN DISORDER
     Dosage: UNK
  3. SINGULAIR [Concomitant]
     Indication: ASTHMA
     Dosage: UNK
  4. MIRALAX [Concomitant]
     Indication: SPINA BIFIDA
     Dosage: UNK
  5. TOPAMAX [Concomitant]
     Indication: CONVULSION
     Dosage: WEANING OFF
  6. CLARITIN [Concomitant]
     Indication: HYPERSENSITIVITY
     Dosage: UNK
  7. DITROPAN [Concomitant]
     Indication: BLADDER DISORDER
     Dosage: UNK
  8. ABILIFY [Concomitant]
     Indication: PRODUCT USED FOR UNKNOWN INDICATION
     Dosage: UNK
  9. LAMICTAL [Concomitant]
     Indication: CONVULSION
     Dosage: UNK
  10. NASONEX [Concomitant]
     Indication: ASTHMA
     Dosage: UNK

REACTIONS (4)
  - Application site pruritus [Not Recovered/Not Resolved]
  - Application site erythema [Not Recovered/Not Resolved]
  - Application site rash [Not Recovered/Not Resolved]
  - Application site discolouration [Not Recovered/Not Resolved]
